FAERS Safety Report 7920541 (Version 23)
Quarter: 2013Q3

REPORT INFORMATION
  Report Type: Spontaneous
  Country: US (occurrence: US)
  Receive Date: 20110429
  Receipt Date: 20130826
  Transmission Date: 20140515
  Serious: Yes (Death, Other)
  Sender: FDA-Public Use
  Company Number: PHEH2011US00468

PATIENT
  Age: 50 Year
  Sex: Female
  Weight: 56 kg

DRUGS (8)
  1. ZOMETA [Suspect]
     Indication: METASTASES TO BONE
     Dosage: 4 MG, QMO
     Route: 042
     Dates: start: 2007, end: 200901
  2. AVASTIN [Concomitant]
  3. TAXOTERE [Concomitant]
  4. CARBOPLATIN [Concomitant]
  5. EFFEXOR [Concomitant]
  6. KEPRA [Concomitant]
  7. FENTORA [Concomitant]
  8. ZYPREXA [Concomitant]

REACTIONS (145)
  - Salivary hypersecretion [Unknown]
  - Kyphosis [Unknown]
  - Haematochezia [Unknown]
  - Anaemia [Unknown]
  - Haemoptysis [Unknown]
  - Pathological fracture [Unknown]
  - Oral cavity fistula [Unknown]
  - Wound infection [Unknown]
  - Facet joint syndrome [Unknown]
  - Bone loss [Unknown]
  - Alpha haemolytic streptococcal infection [Unknown]
  - Paraspinal abscess [Unknown]
  - Mental status changes [Unknown]
  - Chondromalacia [Unknown]
  - Syncope [Unknown]
  - Respiratory distress [Unknown]
  - Hepatic cyst [Unknown]
  - Non-small cell lung cancer metastatic [Unknown]
  - Osteoradionecrosis [Unknown]
  - Vocal cord paralysis [Unknown]
  - Emphysema [Unknown]
  - Systemic inflammatory response syndrome [Unknown]
  - Gastritis [Unknown]
  - Malnutrition [Unknown]
  - Asthenia [Unknown]
  - Jaw fracture [Unknown]
  - Aorticopulmonary septal defect [Unknown]
  - Pulmonary mass [Unknown]
  - Plasma cell myeloma [Unknown]
  - Second primary malignancy [Unknown]
  - Nodule [Unknown]
  - Lymph node calcification [Unknown]
  - Granuloma [Unknown]
  - Arteriosclerosis coronary artery [Unknown]
  - Bronchiectasis [Unknown]
  - Alveolitis [Unknown]
  - Interstitial lung disease [Unknown]
  - Metastases to bone [Unknown]
  - Spondylitis [Unknown]
  - Osteolysis [Unknown]
  - Joint effusion [Unknown]
  - Dystrophic calcification [Unknown]
  - Fall [Unknown]
  - Lung consolidation [Unknown]
  - Pancreatic atrophy [Unknown]
  - Diverticulum intestinal [Unknown]
  - Exostosis [Unknown]
  - Soft tissue inflammation [Unknown]
  - Swelling [Unknown]
  - Bone marrow oedema [Unknown]
  - Hypothyroidism [Unknown]
  - Radiculopathy [Unknown]
  - Bladder dilatation [Unknown]
  - Pyrexia [Unknown]
  - Weight decreased [Unknown]
  - Chest discomfort [Unknown]
  - Abdominal distension [Unknown]
  - Hypokalaemia [Unknown]
  - Hypomagnesaemia [Unknown]
  - Nausea [Unknown]
  - Cough [Unknown]
  - Dysphagia [Unknown]
  - Constipation [Unknown]
  - Chest pain [Unknown]
  - Back pain [Unknown]
  - Gait disturbance [Unknown]
  - Bone pain [Unknown]
  - Oedema peripheral [Unknown]
  - Wound [Unknown]
  - Erythema [Unknown]
  - Gastrooesophageal reflux disease [Unknown]
  - Neck pain [Unknown]
  - Dyspnoea [Unknown]
  - Diarrhoea [Unknown]
  - Faecal incontinence [Unknown]
  - Pain in extremity [Unknown]
  - Musculoskeletal pain [Unknown]
  - Hypoaesthesia [Unknown]
  - Arthralgia [Unknown]
  - Tremor [Unknown]
  - Death [Fatal]
  - Osteonecrosis of jaw [Unknown]
  - Infection [Unknown]
  - Deformity [Unknown]
  - Pain [Unknown]
  - Injury [Unknown]
  - Emotional distress [Unknown]
  - Physical disability [Unknown]
  - Anxiety [Unknown]
  - Nephrolithiasis [Unknown]
  - Hypotension [Unknown]
  - Depression [Unknown]
  - Kyphoscoliosis [Unknown]
  - Aortic calcification [Unknown]
  - Aortic arteriosclerosis [Unknown]
  - Atelectasis [Unknown]
  - Pleural effusion [Unknown]
  - Synovial cyst [Unknown]
  - Intervertebral disc degeneration [Unknown]
  - Osteosclerosis [Unknown]
  - Bone lesion [Unknown]
  - Hepatic lesion [Unknown]
  - Chronic obstructive pulmonary disease [Not Recovered/Not Resolved]
  - Exposed bone in jaw [Unknown]
  - Pain in jaw [Unknown]
  - Bone fragmentation [Unknown]
  - Pulmonary fibrosis [Unknown]
  - Pneumothorax [Unknown]
  - Lung infiltration [Unknown]
  - Pneumonia [Unknown]
  - Convulsion [Unknown]
  - Metastases to oesophagus [Unknown]
  - Fibula fracture [Unknown]
  - Balance disorder [Unknown]
  - Loss of consciousness [Unknown]
  - Dizziness [Unknown]
  - Sinusitis [Unknown]
  - Cellulitis [Unknown]
  - Intervertebral disc protrusion [Unknown]
  - Vertebral foraminal stenosis [Unknown]
  - Thoracic vertebral fracture [Unknown]
  - Osteonecrosis [Unknown]
  - Arthropathy [Unknown]
  - Spinal column stenosis [Unknown]
  - Meniscus injury [Unknown]
  - Spondyloarthropathy [Unknown]
  - Pneumonitis [Unknown]
  - Temporomandibular joint syndrome [Unknown]
  - Anaemia vitamin B12 deficiency [Unknown]
  - Upper airway obstruction [Unknown]
  - Thrombocytopenia [Unknown]
  - Urinary tract infection [Unknown]
  - Osteoporosis [Unknown]
  - Bronchitis [Unknown]
  - Sleep apnoea syndrome [Unknown]
  - Cyst [Unknown]
  - Tracheo-oesophageal fistula [Unknown]
  - Hypertension [Unknown]
  - Metastases to lymph nodes [Unknown]
  - Osteoarthritis [Unknown]
  - Spinal osteoarthritis [Unknown]
  - Deafness [Unknown]
  - Metastases to spine [Unknown]
  - Metastases to chest wall [Unknown]
  - Oral pain [Unknown]
